FAERS Safety Report 7733983-2 (Version None)
Quarter: 2011Q3

REPORT INFORMATION
  Report Type: 
  Country: None (occurrence: None)
  Receive Date: 20110901
  Receipt Date: 20110819
  Transmission Date: 20111222
  Serious: Yes (Other)
  Sender: FDA-Public Use
  Company Number: 2011AP001807

PATIENT
  Age: 34 Year
  Sex: Male

DRUGS (3)
  1. DULOXETIME HYDROCHLORIDE [Suspect]
     Indication: PRODUCT USED FOR UNKNOWN INDICATION
  2. GABAPENTIN [Suspect]
     Indication: SOCIAL PHOBIA
     Dosage: 100 MG; PM; 200 MG; QD; 300 MG; PM
  3. BUPROPION HCL [Concomitant]

REACTIONS (6)
  - SEXUAL DYSFUNCTION [None]
  - ANXIETY [None]
  - LOSS OF LIBIDO [None]
  - ANORGASMIA [None]
  - ERECTILE DYSFUNCTION [None]
  - EJACULATION FAILURE [None]
